FAERS Safety Report 9264853 (Version 1)
Quarter: 2013Q2

REPORT INFORMATION
  Report Type: Spontaneous
  Country: US (occurrence: None)
  Receive Date: 20130430
  Receipt Date: 20130430
  Transmission Date: 20140414
  Serious: Yes (Other)
  Sender: FDA-Public Use
  Company Number: None

PATIENT
  Age: 29 Year
  Sex: Female
  Weight: 95.26 kg

DRUGS (1)
  1. MIRENA BAYER [Suspect]
     Indication: CONTRACEPTION
     Dates: start: 20070616, end: 20071004

REACTIONS (3)
  - Uterine perforation [None]
  - Device dislocation [None]
  - Device dislocation [None]
